FAERS Safety Report 20591264 (Version 1)
Quarter: 2022Q1

REPORT INFORMATION
  Report Type: Spontaneous
  Country: CN (occurrence: None)
  Receive Date: 20220314
  Receipt Date: 20220314
  Transmission Date: 20220423
  Serious: Yes (Other)
  Sender: FDA-Public Use
  Company Number: CN-ROCHE-3045374

PATIENT
  Age: 61 Year
  Sex: Female

DRUGS (32)
  1. MABTHERA [Suspect]
     Active Substance: RITUXIMAB
     Indication: Diffuse large B-cell lymphoma
     Dosage: ON DAY 2
     Route: 041
     Dates: start: 20210824
  2. MABTHERA [Suspect]
     Active Substance: RITUXIMAB
     Route: 041
     Dates: start: 20210917
  3. MABTHERA [Suspect]
     Active Substance: RITUXIMAB
     Route: 041
     Dates: start: 20211009
  4. MABTHERA [Suspect]
     Active Substance: RITUXIMAB
     Dosage: FOR DAY 1
     Route: 041
     Dates: start: 20220114
  5. GAZYVA [Suspect]
     Active Substance: OBINUTUZUMAB
     Indication: Diffuse large B-cell lymphoma
     Route: 042
     Dates: start: 20211130
  6. GAZYVA [Suspect]
     Active Substance: OBINUTUZUMAB
     Dosage: ON DAY 0
     Route: 042
     Dates: start: 20211223
  7. DEXAMETHASONE [Concomitant]
     Active Substance: DEXAMETHASONE
     Indication: Diffuse large B-cell lymphoma
     Route: 037
     Dates: start: 20211130
  8. DEXAMETHASONE [Concomitant]
     Active Substance: DEXAMETHASONE
     Route: 037
     Dates: start: 20211223
  9. VINCRISTINE [Concomitant]
     Active Substance: VINCRISTINE
     Dosage: FOR DAY 1
     Dates: start: 20210824
  10. VINCRISTINE [Concomitant]
     Active Substance: VINCRISTINE
     Dosage: FOR DAY 1
     Dates: start: 20210904
  11. VINCRISTINE [Concomitant]
     Active Substance: VINCRISTINE
     Dates: start: 20210917
  12. CYCLOPHOSPHAMIDE [Concomitant]
     Active Substance: CYCLOPHOSPHAMIDE
     Dosage: FOR DAY3-4
     Dates: start: 20210824
  13. CYCLOPHOSPHAMIDE [Concomitant]
     Active Substance: CYCLOPHOSPHAMIDE
     Dosage: FOR DAY1-2
     Dates: start: 20210904
  14. CYCLOPHOSPHAMIDE [Concomitant]
     Active Substance: CYCLOPHOSPHAMIDE
     Dates: start: 20210917
  15. CYCLOPHOSPHAMIDE [Concomitant]
     Active Substance: CYCLOPHOSPHAMIDE
     Dates: start: 20211009
  16. DOXORUBICIN HYDROCHLORIDE [Concomitant]
     Active Substance: DOXORUBICIN HYDROCHLORIDE
     Dates: start: 20210917
  17. DOXORUBICIN HYDROCHLORIDE [Concomitant]
     Active Substance: DOXORUBICIN HYDROCHLORIDE
     Dates: start: 20211009
  18. PREDNISOLONE [Concomitant]
     Active Substance: PREDNISOLONE
     Dosage: FOR DAY1-5
     Dates: start: 20210917
  19. PREDNISOLONE [Concomitant]
     Active Substance: PREDNISOLONE
     Dosage: FOR DAY1-5
     Dates: start: 20211009
  20. GEMCITABINE [Concomitant]
     Active Substance: GEMCITABINE
     Dosage: FOR DAY1,DAY7
     Dates: start: 20211130
  21. GEMCITABINE [Concomitant]
     Active Substance: GEMCITABINE
     Dosage: FOR DAY1,DAY6
     Dates: start: 20211223
  22. OXALIPLATIN [Concomitant]
     Active Substance: OXALIPLATIN
     Dosage: FOR DAY1
     Dates: start: 20211130
  23. OXALIPLATIN [Concomitant]
     Active Substance: OXALIPLATIN
     Dosage: FOR DAY1
     Dates: start: 20211223
  24. LENALIDOMIDE [Concomitant]
     Active Substance: LENALIDOMIDE
     Dosage: FOR DAY1-14
     Dates: start: 20211130
  25. LENALIDOMIDE [Concomitant]
     Active Substance: LENALIDOMIDE
     Dosage: FOR DAY1-14, 2 WEEKS ON, 1 WEEK OFF
     Dates: start: 20211223
  26. METHOTREXATE [Concomitant]
     Active Substance: METHOTREXATE
     Route: 037
     Dates: start: 20211130
  27. METHOTREXATE [Concomitant]
     Active Substance: METHOTREXATE
     Dates: start: 20211223
  28. CYTARABINE [Concomitant]
     Active Substance: CYTARABINE
     Route: 037
     Dates: start: 20211130
  29. CYTARABINE [Concomitant]
     Active Substance: CYTARABINE
     Dates: start: 20211223
  30. BENDAMUSTINE [Concomitant]
     Active Substance: BENDAMUSTINE
     Dosage: FOR DAY2,3
     Dates: start: 20220114
  31. ZANUBRUTINIB [Concomitant]
     Active Substance: ZANUBRUTINIB
     Dates: start: 20220114
  32. TUCIDINOSTAT [Concomitant]
     Active Substance: TUCIDINOSTAT
     Dates: start: 20220114

REACTIONS (4)
  - Agranulocytosis [Recovered/Resolved]
  - Platelet count decreased [Recovered/Resolved]
  - White blood cell count decreased [Recovered/Resolved]
  - Drug resistance [Unknown]
